FAERS Safety Report 4310878-8 (Version None)
Quarter: 2004Q1

REPORT INFORMATION
  Report Type: 
  Country: None (occurrence: None)
  Receive Date: 20040302
  Receipt Date: 20040302
  Transmission Date: 20041129
  Serious: Yes (Hospitalization)
  Sender: FDA-Public Use
  Company Number: None

PATIENT
  Sex: Male
  Weight: 55.3388 kg

DRUGS (1)
  1. CEFUROXIME [Suspect]
     Indication: OSTEOMYELITIS
     Dosage: 1.5 G Q8 H IV
     Route: 042
     Dates: start: 20040212, end: 20040221

REACTIONS (6)
  - BACK PAIN [None]
  - CHEST PAIN [None]
  - COUGH [None]
  - DYSPNOEA [None]
  - PAIN [None]
  - TACHYPNOEA [None]
